FAERS Safety Report 18191998 (Version 1)
Quarter: 2020Q3

REPORT INFORMATION
  Report Type: Spontaneous
  Country: GB (occurrence: GB)
  Receive Date: 20200825
  Receipt Date: 20200825
  Transmission Date: 20201103
  Serious: Yes (Hospitalization, Disabling)
  Sender: FDA-Public Use
  Company Number: GB-TORRENT-00023979

PATIENT
  Age: 75 Year
  Sex: Female

DRUGS (2)
  1. ATORVASTATIN [Suspect]
     Active Substance: ATORVASTATIN
     Indication: PRODUCT USED FOR UNKNOWN INDICATION
     Dosage: AT NIGHT ? WAS NOT TAKING BEFORE OR DURING ADMISSION
     Route: 048
  2. CLOPIDOGREL [Suspect]
     Active Substance: CLOPIDOGREL BISULFATE
     Indication: PRODUCT USED FOR UNKNOWN INDICATION
     Dosage: HELD ON ADMISSION
     Route: 048

REACTIONS (8)
  - Brain oedema [Unknown]
  - Facial paralysis [Unknown]
  - Cerebral ischaemia [Unknown]
  - Intracranial mass [Unknown]
  - Hemiparesis [Unknown]
  - Haemorrhage intracranial [Recovered/Resolved with Sequelae]
  - Visual impairment [Unknown]
  - Cerebral atrophy [Unknown]

NARRATIVE: CASE EVENT DATE: 20191213
